FAERS Safety Report 23665270 (Version 1)
Quarter: 2024Q1

REPORT INFORMATION
  Report Type: Spontaneous
  Country: AU (occurrence: AU)
  Receive Date: 20240322
  Receipt Date: 20240322
  Transmission Date: 20240410
  Serious: Yes (Hospitalization, Other)
  Sender: FDA-Public Use
  Company Number: AU-009507513-2403AUS006603

PATIENT
  Age: 60 Year
  Sex: Female

DRUGS (1)
  1. KEYTRUDA [Suspect]
     Active Substance: PEMBROLIZUMAB
     Indication: Breast cancer

REACTIONS (6)
  - Pollakiuria [Unknown]
  - Sepsis [Unknown]
  - Nephritis [Unknown]
  - Fatigue [Unknown]
  - Pyrexia [Unknown]
  - Skin toxicity [Recovering/Resolving]
